FAERS Safety Report 5935410-4 (Version None)
Quarter: 2008Q4

REPORT INFORMATION
  Report Type: 
  Country: None (occurrence: None)
  Receive Date: 20081030
  Receipt Date: 20081017
  Transmission Date: 20090506
  Serious: Yes (Hospitalization, Other)
  Sender: FDA-Public Use
  Company Number: CA-ELI_LILLY_AND_COMPANY-CA200810004704

PATIENT
  Age: 85 Year
  Sex: Female

DRUGS (17)
  1. FORTEO [Suspect]
     Indication: OSTEOPOROSIS
     Dosage: 20 UG, DAILY (1/D)
     Dates: start: 20070606, end: 20080912
  2. FORTEO [Suspect]
     Dates: start: 20081016
  3. SYNTHROID [Concomitant]
  4. ASPIRIN [Concomitant]
     Dosage: 81 MG, UNK
  5. PANTOPRAZOLE SODIUM [Concomitant]
  6. CORDARONE [Concomitant]
  7. ALTACE [Concomitant]
  8. LOPRESSOR [Concomitant]
  9. CLONIDINE [Concomitant]
  10. VITAMIN D [Concomitant]
  11. COUMADIN [Concomitant]
  12. ZOCOR [Concomitant]
  13. COLACE [Concomitant]
  14. CALCIUM [Concomitant]
  15. NORVASC [Concomitant]
  16. ATASOL [Concomitant]
  17. TYLENOL (CAPLET) [Concomitant]

REACTIONS (5)
  - CHEST PAIN [None]
  - CONTUSION [None]
  - FALL [None]
  - FATIGUE [None]
  - PAIN [None]
